FAERS Safety Report 13360630 (Version 2)
Quarter: 2017Q2

REPORT INFORMATION
  Report Type: Report from Study
  Country: US (occurrence: US)
  Receive Date: 20170322
  Receipt Date: 20170403
  Transmission Date: 20170830
  Serious: Yes (Other)
  Sender: FDA-Public Use
  Company Number: US-BAXALTA-2017BLT000955

PATIENT
  Age: 64 Year
  Sex: Female

DRUGS (1)
  1. HYQVIA [Suspect]
     Active Substance: HUMAN IMMUNOGLOBULIN G\HYALURONIDASE RECOMBINANT HUMAN
     Indication: HYPOGAMMAGLOBULINAEMIA
     Dosage: RAMP UP DOSE
     Route: 058
     Dates: start: 20170119, end: 20170208

REACTIONS (10)
  - Sinus disorder [Unknown]
  - Dizziness [Unknown]
  - Gait disturbance [Unknown]
  - Vomiting [Unknown]
  - Pharyngeal disorder [Recovered/Resolved]
  - Gastroenteritis viral [Unknown]
  - Chest discomfort [Recovered/Resolved]
  - Migraine [Recovered/Resolved]
  - Erythema [Recovered/Resolved]
  - Fatigue [Recovered/Resolved]

NARRATIVE: CASE EVENT DATE: 20170119
